FAERS Safety Report 22264996 (Version 1)
Quarter: 2023Q2

REPORT INFORMATION
  Report Type: Report from Study
  Country: US (occurrence: US)
  Receive Date: 20230428
  Receipt Date: 20230428
  Transmission Date: 20230722
  Serious: Yes (Hospitalization)
  Sender: FDA-Public Use
  Company Number: US-MYLANLABS-2023M1043646

PATIENT
  Age: 69 Year
  Sex: Male

DRUGS (1)
  1. DEXAMETHASONE [Suspect]
     Active Substance: DEXAMETHASONE
     Indication: COVID-19 pneumonia
     Dosage: 6 MILLIGRAM, QD (SCHEDULED FOR 10 DAYS)
     Route: 065
     Dates: start: 2021

REACTIONS (2)
  - Hyperglycaemia [Unknown]
  - Off label use [Unknown]

NARRATIVE: CASE EVENT DATE: 20210101
